FAERS Safety Report 16460229 (Version 1)
Quarter: 2019Q2

REPORT INFORMATION
  Report Type: Spontaneous
  Country: IT (occurrence: IT)
  Receive Date: 20190620
  Receipt Date: 20190620
  Transmission Date: 20190711
  Serious: Yes (Life-Threatening, Other)
  Sender: FDA-Public Use
  Company Number: IT-BAXTER-2019BAX011710

PATIENT
  Age: 44 Year
  Sex: Female
  Weight: 80 kg

DRUGS (10)
  1. FLUVOXAMINE [Suspect]
     Active Substance: FLUVOXAMINE
     Dosage: GRADUALLY INCREASED UP TO 250 MG
     Route: 065
  2. CLOTIAPINE [Concomitant]
     Active Substance: CLOTHIAPINE
     Indication: BIPOLAR II DISORDER
     Route: 065
  3. FLUVOXAMINE [Suspect]
     Active Substance: FLUVOXAMINE
     Dosage: GRADUALLY INCREASED UP TO 250 MG
     Route: 065
  4. ATORVASTATIN [Concomitant]
     Active Substance: ATORVASTATIN
     Indication: HYPERCHOLESTEROLAEMIA
     Route: 065
  5. CLOTIAPINE [Concomitant]
     Active Substance: CLOTHIAPINE
     Dosage: ON REDUCED DOSE
     Route: 065
  6. FLUVOXAMINE [Suspect]
     Active Substance: FLUVOXAMINE
     Indication: DYSMORPHISM
     Route: 065
  7. DIRETIF 10 MG/ML SOLUZIONE INIETTABILE [Suspect]
     Active Substance: FUROSEMIDE
     Indication: PRODUCT USED FOR UNKNOWN INDICATION
     Dosage: OCCASIONALLY
     Route: 065
  8. OXCARBAZEPINE. [Suspect]
     Active Substance: OXCARBAZEPINE
     Indication: BIPOLAR II DISORDER
     Route: 065
  9. OXCARBAZEPINE. [Suspect]
     Active Substance: OXCARBAZEPINE
     Dosage: ON REDUCED DOSE
     Route: 065
  10. LEVOTHYROXINE. [Concomitant]
     Active Substance: LEVOTHYROXINE
     Indication: AUTOIMMUNE THYROIDITIS
     Route: 065

REACTIONS (6)
  - Electrolyte imbalance [Unknown]
  - Hypochloraemia [Recovered/Resolved]
  - Drug abuse [Unknown]
  - Hyponatraemia [Recovered/Resolved]
  - Inappropriate antidiuretic hormone secretion [Recovered/Resolved]
  - Blood phosphorus decreased [Unknown]
